FAERS Safety Report 8815588 (Version 1)
Quarter: 2012Q4

REPORT INFORMATION
  Report Type: 
  Country: FR (occurrence: FR)
  Receive Date: 20120928
  Receipt Date: 20120928
  Transmission Date: 20130627
  Serious: Yes (Other)
  Sender: FDA-Public Use
  Company Number: FR-ELI_LILLY_AND_COMPANY-FR201209005597

PATIENT
  Age: 67 Year
  Sex: Male

DRUGS (4)
  1. GEMZAR [Suspect]
     Indication: ADENOCARCINOMA PANCREAS
     Dosage: 1000 mg/m2 weekly for three weeks, off one week, resume
     Dates: start: 20120509, end: 20120830
  2. LOSARTAN [Concomitant]
     Indication: HYPERTENSION
  3. SOLU MEDROL [Concomitant]
     Indication: PROPHYLAXIS
     Dosage: 40 mg, unknown
  4. ONDANSETRON [Concomitant]
     Indication: PROPHYLAXIS
     Dosage: 8 mg, unknown

REACTIONS (6)
  - Pericarditis [Recovered/Resolved]
  - Inflammation [Recovered/Resolved]
  - Fatigue [Unknown]
  - Pyrexia [Unknown]
  - Rash [Unknown]
  - General physical health deterioration [Unknown]
